FAERS Safety Report 8322598-3 (Version None)
Quarter: 2012Q2

REPORT INFORMATION
  Report Type: 
  Country: None (occurrence: None)
  Receive Date: 20120426
  Receipt Date: 20120411
  Transmission Date: 20120825
  Serious: Yes (Other)
  Sender: FDA-Public Use
  Company Number: JPI-P-019473

PATIENT
  Age: 45 Year
  Sex: Female
  Weight: 144.6975 kg

DRUGS (7)
  1. OXYCONTIN [Concomitant]
  2. XYREM [Suspect]
     Indication: FIBROMYALGIA
     Dosage: (1ST DOSE  4 GM/2ND DOSE 2 GM),ORAL ; 8 GM (4 GM,2 IN 1 D),ORAL
     Route: 048
     Dates: start: 20120120
  3. XYREM [Suspect]
     Indication: INSOMNIA
     Dosage: (1ST DOSE  4 GM/2ND DOSE 2 GM),ORAL ; 8 GM (4 GM,2 IN 1 D),ORAL
     Route: 048
     Dates: start: 20120120
  4. XYREM [Suspect]
     Indication: NARCOLEPSY
     Dosage: (1ST DOSE  4 GM/2ND DOSE 2 GM),ORAL ; 8 GM (4 GM,2 IN 1 D),ORAL
     Route: 048
     Dates: start: 20120120
  5. XYREM [Suspect]
     Indication: FIBROMYALGIA
     Dosage: (1ST DOSE  4 GM/2ND DOSE 2 GM),ORAL ; 8 GM (4 GM,2 IN 1 D),ORAL
     Route: 048
     Dates: start: 20120216
  6. XYREM [Suspect]
     Indication: INSOMNIA
     Dosage: (1ST DOSE  4 GM/2ND DOSE 2 GM),ORAL ; 8 GM (4 GM,2 IN 1 D),ORAL
     Route: 048
     Dates: start: 20120216
  7. XYREM [Suspect]
     Indication: NARCOLEPSY
     Dosage: (1ST DOSE  4 GM/2ND DOSE 2 GM),ORAL ; 8 GM (4 GM,2 IN 1 D),ORAL
     Route: 048
     Dates: start: 20120216

REACTIONS (8)
  - VOCAL CORD PARALYSIS [None]
  - DYSPHONIA [None]
  - NEURALGIA [None]
  - DRY THROAT [None]
  - STRESS [None]
  - TINNITUS [None]
  - SPEECH DISORDER [None]
  - THYROID NEOPLASM [None]
